FAERS Safety Report 14755887 (Version 5)
Quarter: 2022Q2

REPORT INFORMATION
  Report Type: Spontaneous
  Country: US (occurrence: US)
  Receive Date: 20180413
  Receipt Date: 20220503
  Transmission Date: 20220721
  Serious: No
  Sender: FDA-Public Use
  Company Number: US-PFIZER INC-2018151096

PATIENT
  Age: 69 Year
  Sex: Male

DRUGS (1)
  1. INLYTA [Suspect]
     Active Substance: AXITINIB
     Indication: Renal cancer
     Dosage: 5 MG
     Dates: start: 20171029

REACTIONS (5)
  - Scab [Unknown]
  - Muscle tightness [Unknown]
  - Myalgia [Unknown]
  - Dyspnoea [Unknown]
  - Neoplasm progression [Unknown]
